FAERS Safety Report 5016320-6 (Version None)
Quarter: 2006Q2

REPORT INFORMATION
  Report Type: 
  Country: None (occurrence: None)
  Receive Date: 20060526
  Receipt Date: 20060517
  Transmission Date: 20061013
  Serious: Yes (Life-Threatening, Hospitalization, Other)
  Sender: FDA-Public Use
  Company Number: MX200605003878

PATIENT
  Age: 77 Year
  Sex: Female
  Weight: 53 kg

DRUGS (2)
  1. GEMCITABINE HYDROCHLORIDE(GEMCITABINE HYDROCHLORIDE) VIAL [Suspect]
     Indication: BREAST CANCER METASTATIC
     Dosage: 1000 MG/M2, OTHER, INTRAVENOUS
     Route: 042
     Dates: start: 20060412
  2. DOCETAXEL(DOCETAXEL) [Suspect]
     Indication: BREAST CANCER METASTATIC
     Dosage: 75 MG/M2, 3/W, INTRAVENOUS
     Route: 042
     Dates: start: 20060412

REACTIONS (14)
  - ASTHENIA [None]
  - BLOOD CREATININE INCREASED [None]
  - BLOOD POTASSIUM DECREASED [None]
  - BLOOD POTASSIUM INCREASED [None]
  - BLOOD SODIUM DECREASED [None]
  - BONE PAIN [None]
  - COUGH [None]
  - DEHYDRATION [None]
  - DRUG TOXICITY [None]
  - HYPERGLYCAEMIA [None]
  - NEUTROPHIL COUNT INCREASED [None]
  - POLYDIPSIA [None]
  - POLYURIA [None]
  - WHITE BLOOD CELL COUNT INCREASED [None]
